FAERS Safety Report 7542124-6 (Version None)
Quarter: 2011Q2

REPORT INFORMATION
  Report Type: 
  Country: None (occurrence: None)
  Receive Date: 20110606
  Receipt Date: 20110525
  Transmission Date: 20111010
  Serious: Yes (Other)
  Sender: FDA-Public Use
  Company Number: JP-2011-10520

PATIENT
  Sex: Female

DRUGS (1)
  1. PLETAL [Suspect]
     Dosage: 50 MG MILLIGRAM(S), DAILY DOSE, ORAL
     Route: 048

REACTIONS (2)
  - MYELODYSPLASTIC SYNDROME [None]
  - PANCYTOPENIA [None]
